FAERS Safety Report 23863793 (Version 2)
Quarter: 2024Q2

REPORT INFORMATION
  Report Type: Spontaneous
  Country: US (occurrence: US)
  Receive Date: 20240516
  Receipt Date: 20240619
  Transmission Date: 20240716
  Serious: No
  Sender: FDA-Public Use
  Company Number: US-Calliditas-2024CAL00710

PATIENT
  Age: 46 Year
  Sex: Female
  Weight: 154 kg

DRUGS (1)
  1. TARPEYO [Suspect]
     Active Substance: BUDESONIDE
     Indication: IgA nephropathy
     Route: 048
     Dates: start: 20240329

REACTIONS (3)
  - Hot flush [Unknown]
  - Product residue present [Unknown]
  - Infection [Unknown]
